FAERS Safety Report 19904455 (Version 1)
Quarter: 2021Q3

REPORT INFORMATION
  Report Type: Spontaneous
  Country: CN (occurrence: CN)
  Receive Date: 20210930
  Receipt Date: 20210930
  Transmission Date: 20211014
  Serious: Yes (Death, Hospitalization, Other)
  Sender: FDA-Public Use
  Company Number: CN-009507513-2109CHN006151

PATIENT
  Age: 44 Year
  Sex: Male

DRUGS (1)
  1. PEMBROLIZUMAB. [Suspect]
     Active Substance: PEMBROLIZUMAB
     Indication: HEPATOCELLULAR CARCINOMA
     Dosage: 100 MILLIGRAM; DAY 1/CYCLE
     Route: 042
     Dates: start: 20190606

REACTIONS (8)
  - Respiratory failure [Fatal]
  - Multiple organ dysfunction syndrome [Fatal]
  - Product use in unapproved indication [Unknown]
  - Immune-mediated dermatitis [Unknown]
  - Underdose [Unknown]
  - Circulatory collapse [Fatal]
  - Cardiogenic shock [Fatal]
  - Immune-mediated myocarditis [Fatal]

NARRATIVE: CASE EVENT DATE: 201906
